FAERS Safety Report 18716835 (Version 11)
Quarter: 2023Q4

REPORT INFORMATION
  Report Type: Report from Study
  Country: US (occurrence: US)
  Receive Date: 20210108
  Receipt Date: 20231113
  Transmission Date: 20240109
  Serious: Yes (Death, Hospitalization, Other)
  Sender: FDA-Public Use
  Company Number: US-TAKEDA-US201926439

PATIENT
  Age: 11 Year
  Sex: Male

DRUGS (4)
  1. IDURSULFASE [Suspect]
     Active Substance: IDURSULFASE
     Indication: Mucopolysaccharidosis II
     Dosage: 24 MILLIGRAM, 1/WEEK
     Route: 042
     Dates: start: 20150110
  2. IDURSULFASE [Suspect]
     Active Substance: IDURSULFASE
     Dosage: 24 MILLIGRAM, 1/WEEK
     Route: 042
     Dates: start: 20170112
  3. IDURSULFASE [Suspect]
     Active Substance: IDURSULFASE
     Dosage: 24 MILLIGRAM, 1/WEEK
     Route: 042
     Dates: start: 201712
  4. IDURSULFASE [Suspect]
     Active Substance: IDURSULFASE
     Dosage: 24 MILLIGRAM, 1/WEEK
     Route: 042
     Dates: start: 201807

REACTIONS (10)
  - Death [Fatal]
  - Respiratory syncytial virus infection [Unknown]
  - Cerebrovascular accident [Unknown]
  - Tracheitis [Unknown]
  - Pneumonia [Unknown]
  - Respiratory distress [Unknown]
  - Tendon disorder [Unknown]
  - Poor venous access [Unknown]
  - Pyrexia [Recovered/Resolved]
  - Product dose omission issue [Unknown]

NARRATIVE: CASE EVENT DATE: 20190701
